FAERS Safety Report 7767973-0 (Version None)
Quarter: 2011Q3

REPORT INFORMATION
  Report Type: 
  Country: None (occurrence: None)
  Receive Date: 20110919
  Receipt Date: 20110906
  Transmission Date: 20111222
  Serious: Yes (Hospitalization)
  Sender: FDA-Public Use
  Company Number: DSU-2011-06607

PATIENT
  Age: 54 Year
  Sex: Male
  Weight: 106.5953 kg

DRUGS (2)
  1. METOPROLOL TARTRATE [Concomitant]
  2. BENICAR HCT [Suspect]
     Indication: HYPERTENSION
     Dosage: 40/25 MG (QD), ORAL
     Route: 048
     Dates: start: 20110301, end: 20110404

REACTIONS (10)
  - RENAL FAILURE ACUTE [None]
  - NAUSEA [None]
  - COMA [None]
  - PAIN [None]
  - APPENDICITIS PERFORATED [None]
  - SEPSIS [None]
  - DIALYSIS [None]
  - CONDITION AGGRAVATED [None]
  - DIABETES MELLITUS [None]
  - CEREBROVASCULAR ACCIDENT [None]
